FAERS Safety Report 7340540-9 (Version None)
Quarter: 2011Q1

REPORT INFORMATION
  Report Type: 
  Country: None (occurrence: None)
  Receive Date: 20110309
  Receipt Date: 20110225
  Transmission Date: 20110831
  Serious: Yes (Other)
  Sender: FDA-Public Use
  Company Number: PHFR2011GB01042

PATIENT
  Sex: Male

DRUGS (8)
  1. ASCORBIC ACID [Concomitant]
     Indication: IRON METABOLISM DISORDER
     Dosage: UNK
  2. AMITRIPTYLINE [Concomitant]
     Indication: PAIN
     Dosage: UNK
  3. BISPHOSPHONATES [Concomitant]
  4. CALCIUM [Concomitant]
  5. DESFERAL [Suspect]
     Indication: MYELODYSPLASTIC SYNDROME
     Dosage: ONCE IN A WEEK
     Dates: start: 20100301
  6. GABAPENTIN [Concomitant]
     Dosage: UNK
  7. DOXAZOSIN [Concomitant]
     Indication: HYPERTENSION
     Dosage: UNK
  8. FELODIPINE [Concomitant]
     Indication: HYPERTENSION

REACTIONS (2)
  - BONE PAIN [None]
  - OSTEOPOROTIC FRACTURE [None]
